FAERS Safety Report 5379159-8 (Version None)
Quarter: 2007Q3

REPORT INFORMATION
  Report Type: 
  Country: None (occurrence: None)
  Receive Date: 20070705
  Receipt Date: 20070522
  Transmission Date: 20080115
  Serious: Yes (Hospitalization)
  Sender: FDA-Public Use
  Company Number: IT-BRISTOL-MYERS SQUIBB COMPANY-13790092

PATIENT
  Age: 35 Year
  Sex: Female
  Weight: 80 kg

DRUGS (1)
  1. DASATINIB [Suspect]
     Dates: start: 20070304, end: 20070508

REACTIONS (7)
  - ASCITES [None]
  - CAECITIS [None]
  - OEDEMA [None]
  - PERICARDIAL DISEASE [None]
  - PLEURAL EFFUSION [None]
  - PYREXIA [None]
  - WEIGHT INCREASED [None]
